FAERS Safety Report 6405135-X (Version None)
Quarter: 2009Q4

REPORT INFORMATION
  Report Type: 
  Country: None (occurrence: None)
  Receive Date: 20091019
  Receipt Date: 20091008
  Transmission Date: 20100525
  Serious: No
  Sender: FDA-Public Use
  Company Number: US-B.I. PHARMACEUTICALS,INC./RIDGEFIELD-2009-BP-10923BP

PATIENT
  Age: 6 Year
  Sex: Male

DRUGS (3)
  1. CATAPRES-TTS-1 [Suspect]
     Indication: ABNORMAL BEHAVIOUR
     Route: 062
     Dates: start: 20090901
  2. ABILIFY [Concomitant]
     Indication: ABNORMAL BEHAVIOUR
  3. MULTI-VITAMINS [Concomitant]
     Indication: VITAMIN SUPPLEMENTATION

REACTIONS (3)
  - APPLICATION SITE DISCOMFORT [None]
  - APPLICATION SITE PRURITUS [None]
  - RASH ERYTHEMATOUS [None]
